FAERS Safety Report 4636799-9 (Version None)
Quarter: 2005Q2

REPORT INFORMATION
  Report Type: 
  Country: None (occurrence: None)
  Receive Date: 20050415
  Receipt Date: 20050314
  Transmission Date: 20051028
  Serious: Yes (Hospitalization)
  Sender: FDA-Public Use
  Company Number: AU-ABBOTT-05P-008-0294038-01

PATIENT
  Sex: Female
  Weight: 43 kg

DRUGS (1)
  1. HUMIRA [Suspect]
     Indication: CROHN'S DISEASE
     Route: 058
     Dates: start: 20040223

REACTIONS (3)
  - CLOSTRIDIUM COLITIS [None]
  - GASTROENTERITIS [None]
  - LARGE INTESTINAL STRICTURE [None]
